FAERS Safety Report 17391955 (Version 2)
Quarter: 2020Q1

REPORT INFORMATION
  Report Type: Report from Study
  Country: US (occurrence: US)
  Receive Date: 20200207
  Receipt Date: 20200213
  Transmission Date: 20200409
  Serious: Yes (Disabling)
  Sender: FDA-Public Use
  Company Number: US-GILEAD-2020-0450099

PATIENT
  Age: 47 Year
  Sex: Male

DRUGS (1)
  1. EMTRICITABINE/TENOFOVIR DISOPROXIL FUMARATE [Suspect]
     Active Substance: EMTRICITABINE\TENOFOVIR DISOPROXIL FUMARATE
     Indication: PROPHYLAXIS AGAINST HIV INFECTION
     Dosage: 1 DOSAGE FORM, QD, 200-300
     Route: 065

REACTIONS (3)
  - Lethargy [Recovered/Resolved]
  - Malaise [Recovered/Resolved]
  - Product size issue [Recovered/Resolved]

NARRATIVE: CASE EVENT DATE: 201905
